FAERS Safety Report 7792083-6 (Version None)
Quarter: 2011Q3

REPORT INFORMATION
  Report Type: 
  Country: None (occurrence: None)
  Receive Date: 20110929
  Receipt Date: 20110922
  Transmission Date: 20111222
  Serious: Yes (Hospitalization)
  Sender: FDA-Public Use
  Company Number: 2011S1001360

PATIENT
  Age: 83 Year
  Sex: Male

DRUGS (1)
  1. LIVALO [Suspect]
     Dosage: 2 MG; PO
     Route: 048
     Dates: start: 20110822, end: 20110922

REACTIONS (1)
  - RHABDOMYOLYSIS [None]
